FAERS Safety Report 25302341 (Version 2)
Quarter: 2025Q2

REPORT INFORMATION
  Report Type: Spontaneous
  Country: IT (occurrence: IT)
  Receive Date: 20250512
  Receipt Date: 20250522
  Transmission Date: 20250717
  Serious: No
  Sender: MYLAN
  Company Number: IT-MYLANLABS-2025M1039769

PATIENT
  Age: 22 Year
  Sex: Female

DRUGS (1)
  1. XANAX [Suspect]
     Active Substance: ALPRAZOLAM
     Indication: Product used for unknown indication

REACTIONS (2)
  - Stab wound [Not Recovered/Not Resolved]
  - Overdose [Unknown]
